FAERS Safety Report 7445950-7 (Version None)
Quarter: 2011Q2

REPORT INFORMATION
  Report Type: 
  Country: None (occurrence: None)
  Receive Date: 20110429
  Receipt Date: 20110119
  Transmission Date: 20111010
  Serious: No
  Sender: FDA-Public Use
  Company Number: US-ASTRAZENECA-2010SE28053

PATIENT
  Sex: Female

DRUGS (3)
  1. PREDNISONE [Concomitant]
  2. OXYGEN [Concomitant]
  3. NEXIUM [Suspect]
     Route: 048

REACTIONS (2)
  - MALAISE [None]
  - PNEUMONIA [None]
